FAERS Safety Report 5608544-1 (Version None)
Quarter: 2008Q1

REPORT INFORMATION
  Report Type: 
  Country: None (occurrence: None)
  Receive Date: 20080125
  Receipt Date: 20080116
  Transmission Date: 20080703
  Serious: Yes (Hospitalization, Other)
  Sender: FDA-Public Use
  Company Number: 2008001761

PATIENT
  Age: 59 Year
  Sex: Female

DRUGS (3)
  1. LISTERINE WHITENING PRE-BRUSH RINSE (NO ACTIVE INGREDIENT) [Suspect]
     Indication: DENTAL CARE
     Dosage: ABOUT 5-10ML ONCE DAILY, ORAL
     Route: 048
     Dates: start: 20071229, end: 20071230
  2. ZOLOFT [Concomitant]
  3. NEURONTIN [Concomitant]

REACTIONS (4)
  - CHOKING [None]
  - CONDITION AGGRAVATED [None]
  - COUGH [None]
  - DYSPNOEA [None]
